FAERS Safety Report 10152189 (Version 2)
Quarter: 2014Q2

REPORT INFORMATION
  Report Type: Spontaneous
  Country: IT (occurrence: None)
  Receive Date: 20140501
  Receipt Date: 20140527
  Transmission Date: 20141212
  Serious: Yes (Hospitalization)
  Sender: FDA-Public Use
  Company Number: 2014STPI000168

PATIENT
  Age: 46 Year
  Sex: Male

DRUGS (4)
  1. MATULANE [Suspect]
     Indication: HODGKIN^S DISEASE
     Dosage: 50 UNK, UNK, ORAL
     Route: 048
     Dates: start: 201404
  2. LAMOTRIGINE TEVA (LAMOTRIGINE) [Concomitant]
  3. DEPAKENE (VALPROATE SODIUM) [Concomitant]
  4. ANTIDEPRESSANTS [Concomitant]

REACTIONS (4)
  - Product physical issue [None]
  - Burn oesophageal [None]
  - Oesophageal ulcer [None]
  - Product physical issue [None]
